FAERS Safety Report 19091813 (Version 1)
Quarter: 2021Q2

REPORT INFORMATION
  Report Type: Report from Study
  Country: US (occurrence: US)
  Receive Date: 20210405
  Receipt Date: 20210405
  Transmission Date: 20210717
  Serious: Yes (Other)
  Sender: FDA-Public Use
  Company Number: US-INSMED, INC.-2021-07988-US

PATIENT
  Sex: Female

DRUGS (3)
  1. COVID VACCINE [Concomitant]
     Indication: PRODUCT USED FOR UNKNOWN INDICATION
  2. ARIKAYCE [Suspect]
     Active Substance: AMIKACIN
     Dosage: 590 MILLIGRAM, QOD
     Route: 055
     Dates: start: 2021
  3. ARIKAYCE [Suspect]
     Active Substance: AMIKACIN
     Indication: MYCOBACTERIAL INFECTION
     Dosage: 590 MILLIGRAM, QD
     Route: 055
     Dates: start: 2021, end: 2021

REACTIONS (13)
  - Malaise [Unknown]
  - Product packaging difficult to open [Unknown]
  - Arthritis [Unknown]
  - Aphonia [Unknown]
  - Product dose omission issue [Unknown]
  - Pain [Unknown]
  - Diarrhoea [Unknown]
  - Device issue [Unknown]
  - Rectal haemorrhage [Unknown]
  - Abdominal discomfort [Unknown]
  - Pruritus [Unknown]
  - Dysphonia [Unknown]
  - Off label use [Unknown]

NARRATIVE: CASE EVENT DATE: 2021
